FAERS Safety Report 26030745 (Version 2)
Quarter: 2025Q4

REPORT INFORMATION
  Report Type: Spontaneous
  Country: CN (occurrence: CN)
  Receive Date: 20251112
  Receipt Date: 20251126
  Transmission Date: 20260118
  Serious: Yes (Other)
  Sender: DECIPHERA PHARMACEUTICALS
  Company Number: CN-ZAILAB-ZAI202502794

PATIENT
  Age: 69 Year
  Sex: Male
  Weight: 85 kg

DRUGS (1)
  1. QINLOCK [Suspect]
     Active Substance: RIPRETINIB
     Indication: Rectal cancer
     Dosage: 150 MG, QD
     Dates: start: 20250624, end: 20251008

REACTIONS (1)
  - Haematochezia [Recovering/Resolving]

NARRATIVE: CASE EVENT DATE: 20251008
